FAERS Safety Report 8258831-6 (Version None)
Quarter: 2012Q2

REPORT INFORMATION
  Report Type: 
  Country: None (occurrence: None)
  Receive Date: 20120404
  Receipt Date: 20120330
  Transmission Date: 20120825
  Serious: No
  Sender: FDA-Public Use
  Company Number: US-PFIZER INC-2012081912

PATIENT
  Sex: Female
  Weight: 107 kg

DRUGS (9)
  1. METFORMIN HYDROCHLORIDE [Concomitant]
     Indication: DIABETES MELLITUS
     Dosage: 1000 MG, 2X/DAY
     Route: 048
  2. CELEBREX [Suspect]
     Indication: FATIGUE
  3. LOSARTAN POTASSIUM AND HYDROCHLOROTHIAZIDE [Concomitant]
     Indication: BLOOD PRESSURE ABNORMAL
     Dosage: 50/12.5 MG, DAILY
     Route: 048
  4. DILANTIN [Concomitant]
     Indication: CONVULSION
     Dosage: 200 MG, 2X/DAY
     Route: 048
  5. ACETYLSALICYLIC ACID [Concomitant]
     Indication: CARDIAC DISORDER
     Dosage: 81 MG, ALTERNATE DAY
  6. CELEBREX [Suspect]
     Indication: MUSCLE SPASMS
  7. CELEBREX [Suspect]
     Indication: MUSCULOSKELETAL DISCOMFORT
     Dosage: 200 MG, DAILY
     Route: 048
     Dates: start: 20120330
  8. CELEBREX [Suspect]
     Indication: PAIN
  9. PAROXETINE HYDROCHLORIDE [Concomitant]
     Indication: CEREBROVASCULAR ACCIDENT
     Dosage: 20 MG, DAILY
     Route: 048

REACTIONS (1)
  - FLATULENCE [None]
